FAERS Safety Report 7469594-6 (Version None)
Quarter: 2011Q2

REPORT INFORMATION
  Report Type: 
  Country: None (occurrence: None)
  Receive Date: 20110510
  Receipt Date: 20081222
  Transmission Date: 20111010
  Serious: Yes (Other)
  Sender: FDA-Public Use
  Company Number: US-BAYER-200827700NA

PATIENT
  Age: 70 Year
  Sex: Male
  Weight: 81.633 kg

DRUGS (21)
  1. ETOMIDATE [Concomitant]
     Dosage: 20 MG, UNK
     Route: 042
     Dates: start: 20060706
  2. TRASYLOL [Suspect]
     Dosage: 200 ML, LOADING DOSE
     Dates: start: 20060706
  3. HEPARIN [Concomitant]
     Dosage: 24,000 UNITS
     Dates: start: 20060706
  4. EPINEPHRINE [Concomitant]
     Dosage: UNK
     Route: 042
     Dates: start: 20060706
  5. MANNITOL [Concomitant]
     Dosage: 25 G, UNK
     Dates: start: 20060706
  6. EPHEDRINE HYDRATE [Concomitant]
     Dosage: UNK
     Route: 042
     Dates: start: 20060701
  7. AMIODARONE [Concomitant]
     Dosage: UNK
     Route: 042
     Dates: start: 20060706
  8. TRASYLOL [Suspect]
     Indication: CORONARY ARTERY BYPASS
     Dosage: 1 ML, UNK
     Dates: start: 20060706
  9. LISINOPRIL [Concomitant]
     Dosage: 40 MG, QD
     Route: 048
  10. HEPARIN [Concomitant]
     Dosage: 5000 U FOR IRRIGATION
     Route: 042
     Dates: start: 20060706
  11. LASIX [Concomitant]
     Dosage: 20 MG, UNK
     Route: 042
     Dates: start: 20060706
  12. TRASYLOL [Suspect]
     Dosage: 50 ML/HR. INFUSION
     Dates: start: 20060706
  13. PRIMIDONE [Concomitant]
     Dosage: 50 MG (3 AT BEDTIME, 2 IN THE AM)
     Route: 048
  14. METOPROLOL SUCCINATE [Concomitant]
     Dosage: 100 MG, BID
     Route: 048
  15. GEMFIBROZIL [Concomitant]
     Dosage: 600 MG, BID
     Route: 048
  16. NITROGLYCERIN [Concomitant]
     Dosage: UNK
     Route: 042
     Dates: start: 20060706
  17. PROTAMINE [Concomitant]
     Dosage: 340 MG, UNK
     Route: 042
     Dates: start: 20060706
  18. MICARDIS [Concomitant]
     Dosage: 80 MG, QD
     Route: 048
  19. ACETYLSALICYLIC ACID SRT [Concomitant]
     Dosage: 81 MG, QD
     Route: 048
  20. HEPARIN [Concomitant]
     Dosage: 5000 UNITS FOR ARTERIAL LINE
     Dates: start: 20060706
  21. KEFZOL [Concomitant]
     Dosage: 1 G, UNK
     Route: 042
     Dates: start: 20060706

REACTIONS (5)
  - EMOTIONAL DISTRESS [None]
  - UNEVALUABLE EVENT [None]
  - INJURY [None]
  - MENTAL DISORDER [None]
  - RENAL FAILURE [None]
